FAERS Safety Report 9672151 (Version 1)
Quarter: 2013Q4

REPORT INFORMATION
  Report Type: Report from Study
  Country: US (occurrence: US)
  Receive Date: 20131106
  Receipt Date: 20131106
  Transmission Date: 20140711
  Serious: Yes (Death, Other)
  Sender: FDA-Public Use
  Company Number: US-TAKEDA-2013TUS001992

PATIENT
  Sex: 0

DRUGS (1)
  1. COLCRYS [Suspect]
     Dosage: 0.6 MG, UNK
     Route: 048

REACTIONS (1)
  - Leukaemia [Fatal]
